FAERS Safety Report 5120934-2 (Version None)
Quarter: 2006Q4

REPORT INFORMATION
  Report Type: 
  Country: None (occurrence: None)
  Receive Date: 20061005
  Receipt Date: 20060928
  Transmission Date: 20070319
  Serious: Yes (Life-Threatening)
  Sender: FDA-Public Use
  Company Number: JP-BRISTOL-MYERS SQUIBB COMPANY-13526322

PATIENT
  Age: 69 Year
  Sex: Male

DRUGS (3)
  1. ENDOXAN [Suspect]
     Indication: LYMPHOMA
     Route: 041
     Dates: start: 20060818, end: 20060818
  2. RITUXAN [Suspect]
     Indication: LYMPHOMA
     Route: 041
     Dates: start: 20060816, end: 20060816
  3. ONCOVIN [Suspect]
     Indication: LYMPHOMA
     Route: 041
     Dates: start: 20060818, end: 20060818

REACTIONS (1)
  - INTERSTITIAL LUNG DISEASE [None]
